FAERS Safety Report 7961682-0 (Version None)
Quarter: 2011Q4

REPORT INFORMATION
  Report Type: 
  Country: None (occurrence: None)
  Receive Date: 20111207
  Receipt Date: 20111124
  Transmission Date: 20120403
  Serious: Yes (Disabling)
  Sender: FDA-Public Use
  Company Number: GB-ELI_LILLY_AND_COMPANY-GB201111007502

PATIENT
  Age: 38 Year
  Sex: Female
  Weight: 87 kg

DRUGS (2)
  1. FLUOXETINE HYDROCHLORIDE [Suspect]
     Indication: DEPRESSION
     Dosage: 20 MG, UNK
     Route: 048
     Dates: start: 20110613, end: 20110621
  2. ACYCLOVIR [Concomitant]

REACTIONS (5)
  - HEMIPARESIS [None]
  - DISINHIBITION [None]
  - ABASIA [None]
  - TREMOR [None]
  - MYOPATHY [None]
